FAERS Safety Report 13544793 (Version 1)
Quarter: 2017Q2

REPORT INFORMATION
  Report Type: Spontaneous
  Country: US (occurrence: US)
  Receive Date: 20170515
  Receipt Date: 20170515
  Transmission Date: 20170830
  Serious: Yes (Other)
  Sender: FDA-Public Use
  Company Number: US-GLAXOSMITHKLINE-US2017069037

PATIENT
  Sex: Female

DRUGS (1)
  1. FLONASE [Suspect]
     Active Substance: FLUTICASONE PROPIONATE
     Indication: PRODUCT USED FOR UNKNOWN INDICATION
     Dosage: UNK UNK, QD (I USED IT FOR YEARS AND YEARS EVERYDAY)

REACTIONS (4)
  - Autoimmune disorder [Unknown]
  - Adrenal disorder [Unknown]
  - Incorrect drug administration duration [Unknown]
  - Hormone level abnormal [Unknown]
